FAERS Safety Report 9278674 (Version 4)
Quarter: 2013Q3

REPORT INFORMATION
  Report Type: Spontaneous
  Country: US (occurrence: None)
  Receive Date: 20130501
  Receipt Date: 20130725
  Transmission Date: 20140515
  Serious: Yes (Other)
  Sender: FDA-Public Use
  Company Number: JPI-P-031347

PATIENT
  Age: 60 Year
  Sex: Male

DRUGS (7)
  1. XYREM [Suspect]
     Indication: INSOMNIA
     Dosage: 9 GM (4.5 GM, 2 IN 1 D), ORAL
     Route: 048
     Dates: start: 20130123
  2. XYREM [Suspect]
     Dosage: 9 GM (4.5 GM, 2 IN 1 D), ORAL
     Route: 048
     Dates: start: 20130123
  3. URSODIOL [Concomitant]
  4. GABAPENTIN [Concomitant]
  5. TRIHEXYPHENIDYL HYDROCHOLORIDE [Concomitant]
  6. CARBIDOPA/LEVODOPA [Concomitant]
  7. CEFTRIAXONE SODIUM [Concomitant]

REACTIONS (2)
  - Parkinsonism [None]
  - Tremor [None]
